FAERS Safety Report 9162418 (Version 2)
Quarter: 2013Q1

REPORT INFORMATION
  Report Type: Spontaneous
  Country: JP (occurrence: None)
  Receive Date: 20130215
  Receipt Date: 20130305
  Transmission Date: 20140127
  Serious: Yes (Other)
  Sender: FDA-Public Use
  Company Number: SPI201300015

PATIENT
  Age: 92 Year
  Sex: Female

DRUGS (7)
  1. AMITIZA [Suspect]
     Route: 048
     Dates: start: 20121206, end: 20130110
  2. MAGMITT (MAGNESIUM OXIDE) [Concomitant]
  3. REMINYL (GALANTAMINE HYDROBROMIDE) [Concomitant]
  4. CEROCRAL (IFENPRODIL TARTRATE) [Concomitant]
  5. NEUQUINON (UBIDECARENONE) [Concomitant]
  6. LASIX (FUROSEMIDE) [Concomitant]
  7. ECARD (CANDESARTAN CILEXETIL W/HYDROCHLOROTHIAZIDE) [Concomitant]

REACTIONS (2)
  - Renal impairment [None]
  - Dehydration [None]
